FAERS Safety Report 8996743 (Version 1)
Quarter: 2012Q4

REPORT INFORMATION
  Report Type: Spontaneous
  Country: US (occurrence: None)
  Receive Date: 20121228
  Receipt Date: 20121228
  Transmission Date: 20130627
  Serious: No
  Sender: FDA-Public Use
  Company Number: None

PATIENT
  Sex: Female
  Weight: 63.5 kg

DRUGS (2)
  1. LATANOPROST [Suspect]
     Indication: OCULAR HYPERTENSION
     Dates: start: 20121129
  2. LATANOPROST [Suspect]
     Indication: OCULAR HYPERTENSION
     Dates: start: 20121207

REACTIONS (5)
  - Product substitution issue [None]
  - Instillation site erythema [None]
  - Instillation site irritation [None]
  - Instillation site pain [None]
  - Photophobia [None]
